FAERS Safety Report 15636372 (Version 3)
Quarter: 2025Q3

REPORT INFORMATION
  Report Type: Report from Study
  Country: EU (occurrence: EU)
  Receive Date: 20181120
  Receipt Date: 20250718
  Transmission Date: 20251021
  Serious: Yes (Death, Other)
  Sender: AUROBINDO
  Company Number: EU-AUROBINDO-AUR-APL-2018-055869

PATIENT
  Age: 76 Year
  Sex: Male

DRUGS (5)
  1. HYDROMORPHONE [Suspect]
     Active Substance: HYDROMORPHONE
     Indication: Muscle spasticity
     Dosage: 3 MG, Q24H
     Route: 058
  2. HYDROMORPHONE [Suspect]
     Active Substance: HYDROMORPHONE
     Indication: Pain
  3. MIDAZOLAM [Suspect]
     Active Substance: MIDAZOLAM
     Indication: Muscle spasticity
     Dosage: 30 MG, Q24H
     Route: 058
  4. METAMIZOLE [Suspect]
     Active Substance: METAMIZOLE
     Indication: Pain
     Dosage: 2.5 G, Q24H
     Route: 058
  5. METAMIZOLE [Suspect]
     Active Substance: METAMIZOLE
     Indication: Muscle spasticity

REACTIONS (3)
  - Death [Fatal]
  - Muscle spasticity [Fatal]
  - Drug ineffective [Fatal]
